FAERS Safety Report 15793902 (Version 1)
Quarter: 2019Q1

REPORT INFORMATION
  Report Type: Spontaneous
  Country: US (occurrence: US)
  Receive Date: 20190107
  Receipt Date: 20190107
  Transmission Date: 20190417
  Serious: No
  Sender: FDA-Public Use
  Company Number: US-SA-2019SA001602

PATIENT
  Age: 42 Year
  Sex: Female

DRUGS (16)
  1. TRULANCE [Concomitant]
     Active Substance: PLECANATIDE
  2. XIFAXAN [Concomitant]
     Active Substance: RIFAXIMIN
  3. ZOLOFT [Concomitant]
     Active Substance: SERTRALINE HYDROCHLORIDE
  4. TOPIRAMATE. [Concomitant]
     Active Substance: TOPIRAMATE
  5. AUBAGIO [Suspect]
     Active Substance: TERIFLUNOMIDE
     Dosage: 1 DF, QD
     Route: 048
     Dates: start: 20181205
  6. TERCONAZOLE. [Concomitant]
     Active Substance: TERCONAZOLE
  7. CATAFLAM [DICLOFENAC SODIUM] [Concomitant]
  8. LYRICA [Concomitant]
     Active Substance: PREGABALIN
  9. SYNTHROID [Concomitant]
     Active Substance: LEVOTHYROXINE SODIUM
  10. TAMSULOSIN [Concomitant]
     Active Substance: TAMSULOSIN
  11. VITAMIN D [Concomitant]
     Active Substance: CHOLECALCIFEROL
  12. DILTIAZEM. [Concomitant]
     Active Substance: DILTIAZEM
  13. TREXIMET [Concomitant]
     Active Substance: NAPROXEN SODIUM\SUMATRIPTAN SUCCINATE
  14. NORCO [Concomitant]
     Active Substance: ACETAMINOPHEN\HYDROCODONE BITARTRATE
  15. TEGRETOL [Concomitant]
     Active Substance: CARBAMAZEPINE
  16. ALBUTEROL [SALBUTAMOL] [Concomitant]
     Active Substance: ALBUTEROL

REACTIONS (2)
  - Alopecia [Not Recovered/Not Resolved]
  - Rash pruritic [Not Recovered/Not Resolved]

NARRATIVE: CASE EVENT DATE: 2018
